FAERS Safety Report 13252584 (Version 1)
Quarter: 2017Q1

REPORT INFORMATION
  Report Type: Spontaneous
  Country: US (occurrence: US)
  Receive Date: 20170220
  Receipt Date: 20170220
  Transmission Date: 20170428
  Serious: Yes (Death, Hospitalization, Disabling)
  Sender: FDA-Public Use
  Company Number: US-JNJFOC-20170217070

PATIENT
  Age: 72 Year
  Sex: Male

DRUGS (2)
  1. LEVAQUIN [Suspect]
     Active Substance: LEVOFLOXACIN
     Indication: PRODUCT USED FOR UNKNOWN INDICATION
     Route: 042
     Dates: start: 20141030, end: 20141102
  2. LEVAQUIN [Suspect]
     Active Substance: LEVOFLOXACIN
     Indication: PRODUCT USED FOR UNKNOWN INDICATION
     Route: 048
     Dates: start: 20141102

REACTIONS (10)
  - Physical disability [Unknown]
  - Death [Fatal]
  - Tremor [Unknown]
  - Musculoskeletal pain [Unknown]
  - Confusional state [Unknown]
  - Tendon rupture [Unknown]
  - Gastrointestinal disorder [Unknown]
  - Dyspnoea [Unknown]
  - Visual impairment [Unknown]
  - Lethargy [Unknown]

NARRATIVE: CASE EVENT DATE: 20141030
